FAERS Safety Report 22534600 (Version 1)
Quarter: 2023Q2

REPORT INFORMATION
  Report Type: Spontaneous
  Country: CN (occurrence: CN)
  Receive Date: 20230608
  Receipt Date: 20230608
  Transmission Date: 20230722
  Serious: Yes (Other)
  Sender: FDA-Public Use
  Company Number: CN-TEVA-2023-CN-2894460

PATIENT
  Age: 49 Year
  Sex: Male

DRUGS (3)
  1. AZILECT [Suspect]
     Active Substance: RASAGILINE MESYLATE
     Indication: Parkinson^s disease
     Dosage: .5 MILLIGRAM DAILY;
     Route: 048
     Dates: start: 20230207, end: 20230307
  2. AZILECT [Suspect]
     Active Substance: RASAGILINE MESYLATE
     Indication: Diabetes mellitus
  3. AZILECT [Suspect]
     Active Substance: RASAGILINE MESYLATE
     Indication: Arteriosclerosis

REACTIONS (3)
  - Angina pectoris [Recovering/Resolving]
  - Pollakiuria [Recovering/Resolving]
  - Bone pain [Recovering/Resolving]

NARRATIVE: CASE EVENT DATE: 20230207
